FAERS Safety Report 15795325 (Version 11)
Quarter: 2019Q2

REPORT INFORMATION
  Report Type: Report from Study
  Country: US (occurrence: US)
  Receive Date: 20190107
  Receipt Date: 20190517
  Transmission Date: 20190711
  Serious: Yes (Hospitalization, Other)
  Sender: FDA-Public Use
  Company Number: US-GILEAD-2019-0383236

PATIENT
  Age: 77 Year
  Sex: Female
  Weight: 81.63 kg

DRUGS (12)
  1. ORENITRAM [Suspect]
     Active Substance: TREPROSTINIL
     Dosage: 2.5 MG, TID
     Route: 065
  2. ORENITRAM [Suspect]
     Active Substance: TREPROSTINIL
     Dosage: 0.25 MG, TID
     Route: 065
  3. WARFARIN [Concomitant]
     Active Substance: WARFARIN
  4. ORENITRAM [Suspect]
     Active Substance: TREPROSTINIL
     Dosage: 3.5 MG
     Route: 048
  5. ORENITRAM [Suspect]
     Active Substance: TREPROSTINIL
     Dosage: 0.125 MG, TID
     Route: 065
  6. ORENITRAM [Suspect]
     Active Substance: TREPROSTINIL
     Dosage: 1 MG
     Route: 065
  7. AMBRISENTAN [Suspect]
     Active Substance: AMBRISENTAN
     Indication: PRODUCT USED FOR UNKNOWN INDICATION
     Dosage: 5 MG, QD
     Route: 065
     Dates: start: 20181114, end: 201902
  8. ORENITRAM [Suspect]
     Active Substance: TREPROSTINIL
     Indication: PULMONARY ARTERIAL HYPERTENSION
     Dosage: 2.875 MG, TID
     Route: 065
     Dates: start: 20190110
  9. ORENITRAM [Suspect]
     Active Substance: TREPROSTINIL
     Dosage: 3.25 MG, TID
     Route: 048
     Dates: start: 20190110
  10. ORENITRAM [Suspect]
     Active Substance: TREPROSTINIL
     Dosage: 3.375 MG, TID
     Route: 065
  11. REMODULIN [Concomitant]
     Active Substance: TREPROSTINIL
  12. TADALAFIL. [Concomitant]
     Active Substance: TADALAFIL

REACTIONS (18)
  - Neck pain [Unknown]
  - Fluid retention [Unknown]
  - Dyspnoea at rest [Not Recovered/Not Resolved]
  - Transient ischaemic attack [Unknown]
  - Dehydration [Unknown]
  - Pain in extremity [Unknown]
  - Headache [Recovered/Resolved]
  - Wheezing [Not Recovered/Not Resolved]
  - Fall [Recovered/Resolved]
  - Nausea [Not Recovered/Not Resolved]
  - Dyspnoea exertional [Not Recovered/Not Resolved]
  - Nasopharyngitis [Not Recovered/Not Resolved]
  - Influenza [Unknown]
  - Contusion [Not Recovered/Not Resolved]
  - Gastric disorder [Unknown]
  - Gallbladder disorder [Unknown]
  - Abdominal discomfort [Recovered/Resolved]
  - Muscular weakness [Not Recovered/Not Resolved]

NARRATIVE: CASE EVENT DATE: 20190512
